FAERS Safety Report 19032513 (Version 1)
Quarter: 2021Q1

REPORT INFORMATION
  Report Type: Spontaneous
  Country: US (occurrence: US)
  Receive Date: 20210319
  Receipt Date: 20210319
  Transmission Date: 20210420
  Serious: Yes (Life-Threatening, Hospitalization, Other)
  Sender: FDA-Public Use
  Company Number: US-ECOLAB-2021-US-005545

PATIENT
  Sex: Male

DRUGS (1)
  1. GEL HAND SANITIZER [Suspect]
     Active Substance: ALCOHOL
     Indication: INTENTIONAL PRODUCT MISUSE
     Dosage: 370 MILLILITERS ONE TIME
     Route: 048
     Dates: start: 20210314, end: 20210314

REACTIONS (5)
  - Unresponsive to stimuli [Recovering/Resolving]
  - Calcium ionised decreased [Recovered/Resolved]
  - Liver function test increased [Recovering/Resolving]
  - Respiratory depression [Recovering/Resolving]
  - Intentional product misuse [Recovered/Resolved]

NARRATIVE: CASE EVENT DATE: 20210314
